FAERS Safety Report 5759205-X (Version None)
Quarter: 2008Q2

REPORT INFORMATION
  Report Type: 
  Country: None (occurrence: None)
  Receive Date: 20080604
  Receipt Date: 20080526
  Transmission Date: 20081010
  Serious: Yes (Hospitalization, Other)
  Sender: FDA-Public Use
  Company Number: ES-ABBOTT-08P-144-0453801-00

PATIENT
  Age: 19 Year
  Sex: Male

DRUGS (4)
  1. HUMIRA [Suspect]
     Indication: CROHN'S DISEASE
     Route: 058
     Dates: start: 20080201, end: 20080401
  2. HUMIRA [Suspect]
     Route: 058
  3. AZATHIOPRINE [Suspect]
     Indication: CROHN'S DISEASE
     Route: 048
     Dates: start: 20080201, end: 20080401
  4. AZATHIOPRINE [Suspect]
     Dates: start: 20080501

REACTIONS (2)
  - HEPATITIS CHOLESTATIC [None]
  - INFECTIOUS MONONUCLEOSIS [None]
